FAERS Safety Report 20497094 (Version 3)
Quarter: 2022Q2

REPORT INFORMATION
  Report Type: Report from Study
  Country: CN (occurrence: CN)
  Receive Date: 20220221
  Receipt Date: 20220524
  Transmission Date: 20220721
  Serious: Yes (Hospitalization)
  Sender: FDA-Public Use
  Company Number: CN-PFIZER INC-202200269203

PATIENT
  Age: 72 Year
  Sex: Male
  Weight: 55 kg

DRUGS (7)
  1. TALAZOPARIB [Suspect]
     Active Substance: TALAZOPARIB
     Indication: Prostate cancer metastatic
     Dosage: QD
     Route: 048
     Dates: start: 20211130, end: 20220126
  2. ENZALUTAMIDE [Suspect]
     Active Substance: ENZALUTAMIDE
     Indication: Prostate cancer metastatic
     Dosage: 160 MG, QD
     Route: 048
     Dates: start: 20211130, end: 20220210
  3. AMLODIPINE BESYLATE [Concomitant]
     Active Substance: AMLODIPINE BESYLATE
     Indication: Hypertension
     Dosage: 2.5 MG, 1X/DAY
     Route: 048
     Dates: start: 201809
  4. ENALAPRIL MALEATE AND FOLIC ACID [Concomitant]
     Indication: Hypertension
     Dosage: 10.8 MG, 1X/DAY
     Route: 048
     Dates: start: 20211117
  5. ROSUVASTATIN CALCIUM [Concomitant]
     Active Substance: ROSUVASTATIN CALCIUM
     Indication: Coronary artery disease
     Dosage: 20 MG, 1X/DAY
     Route: 048
     Dates: start: 2017
  6. ASPIRIN [Concomitant]
     Active Substance: ASPIRIN
     Indication: Coronary artery disease
     Dosage: 100 MG, 1X/DAY
     Route: 048
     Dates: start: 20211117
  7. ESZOPICLONE [Concomitant]
     Active Substance: ESZOPICLONE
     Indication: Insomnia
     Dosage: 3.0 MG, AT NIGHT (QN)
     Route: 048
     Dates: start: 20220208

REACTIONS (2)
  - Arteriosclerosis coronary artery [Recovered/Resolved]
  - Condition aggravated [Recovered/Resolved]

NARRATIVE: CASE EVENT DATE: 20220210
